FAERS Safety Report 25920105 (Version 2)
Quarter: 2025Q4

REPORT INFORMATION
  Report Type: Spontaneous
  Country: CN (occurrence: CN)
  Receive Date: 20251014
  Receipt Date: 20251023
  Transmission Date: 20260118
  Serious: Yes (Hospitalization, Other)
  Sender: NOVO NORDISK
  Company Number: CN-NOVOPROD-1536749

PATIENT
  Age: 52 Year
  Sex: Male
  Weight: 76 kg

DRUGS (1)
  1. NOVOLIN R [Suspect]
     Active Substance: INSULIN HUMAN
     Indication: Type 2 diabetes mellitus
     Dosage: 46 IU, QD (22 IU MORNING, 24 IU NIGHT)
     Route: 058

REACTIONS (2)
  - Posterior capsule opacification [Not Recovered/Not Resolved]
  - Cerebral infarction [Unknown]

NARRATIVE: CASE EVENT DATE: 20250913
